FAERS Safety Report 7097914-3 (Version None)
Quarter: 2010Q4

REPORT INFORMATION
  Report Type: 
  Country: None (occurrence: None)
  Receive Date: 20101112
  Receipt Date: 20101101
  Transmission Date: 20110411
  Serious: Yes (Hospitalization, Other)
  Sender: FDA-Public Use
  Company Number: JP-JNJFOC-20100704172

PATIENT
  Sex: Female
  Weight: 36 kg

DRUGS (25)
  1. DUROTEP MT [Suspect]
     Indication: SPINAL COMPRESSION FRACTURE
     Route: 062
  2. DUROTEP MT [Suspect]
     Route: 062
  3. DUROTEP MT [Suspect]
     Route: 062
  4. DUROTEP MT [Suspect]
     Indication: RHEUMATOID ARTHRITIS
     Route: 062
  5. DUROTEP MT [Suspect]
     Route: 062
  6. DUROTEP MT [Suspect]
     Route: 062
  7. RISPERDAL [Concomitant]
     Indication: INSOMNIA
     Route: 048
  8. PARIET [Concomitant]
     Route: 048
  9. SEDIEL [Concomitant]
     Route: 048
  10. PAXIL [Concomitant]
     Indication: INSOMNIA
     Route: 048
  11. SEROQUEL [Concomitant]
     Route: 048
  12. SILECE [Concomitant]
     Route: 048
  13. MAGMITT [Concomitant]
     Route: 048
  14. MYSLEE [Concomitant]
     Indication: INSOMNIA
     Route: 048
  15. FOLIAMIN [Concomitant]
     Indication: RHEUMATOID ARTHRITIS
     Route: 048
  16. RHEUMATREX [Concomitant]
     Indication: RHEUMATOID ARTHRITIS
     Route: 048
  17. ACTONEL [Concomitant]
     Route: 048
  18. DAI-BOFU-TO [Concomitant]
     Route: 048
  19. RIKKUNSHI-TO [Concomitant]
     Route: 048
  20. PREDNISOLONE [Concomitant]
     Indication: RHEUMATOID ARTHRITIS
     Route: 048
  21. ENBREL [Concomitant]
     Indication: RHEUMATOID ARTHRITIS
     Route: 058
  22. CELECOX [Concomitant]
     Indication: RHEUMATOID ARTHRITIS
     Route: 048
  23. DORAL [Concomitant]
     Indication: INSOMNIA
     Route: 048
  24. ROHYPNOL [Concomitant]
     Indication: INSOMNIA
     Route: 048
  25. RHEUMATREX [Concomitant]
     Route: 048

REACTIONS (13)
  - ALTERED STATE OF CONSCIOUSNESS [None]
  - COUGH [None]
  - DECREASED APPETITE [None]
  - DRUG PRESCRIBING ERROR [None]
  - HYPOVENTILATION [None]
  - INTERVERTEBRAL DISCITIS [None]
  - PNEUMONIA ASPIRATION [None]
  - PYREXIA [None]
  - SLEEP TALKING [None]
  - SOMNOLENCE [None]
  - SPEECH DISORDER [None]
  - STAPHYLOCOCCAL SEPSIS [None]
  - WRONG TECHNIQUE IN DRUG USAGE PROCESS [None]
